FAERS Safety Report 25334853 (Version 1)
Quarter: 2025Q2

REPORT INFORMATION
  Report Type: Spontaneous
  Country: US (occurrence: US)
  Receive Date: 20250520
  Receipt Date: 20250520
  Transmission Date: 20250717
  Serious: Yes (Hospitalization)
  Sender: ORGANON
  Company Number: US-ORGANON-O2505USA002833

PATIENT
  Sex: Female

DRUGS (1)
  1. NEXPLANON [Suspect]
     Active Substance: ETONOGESTREL
     Route: 059
     Dates: end: 20250514

REACTIONS (2)
  - Implant site haemorrhage [Not Recovered/Not Resolved]
  - Vascular injury [Not Recovered/Not Resolved]

NARRATIVE: CASE EVENT DATE: 20250514
